FAERS Safety Report 8737961 (Version 3)
Quarter: 2012Q4

REPORT INFORMATION
  Report Type: Report from Study
  Country: FR (occurrence: FR)
  Receive Date: 20120823
  Receipt Date: 20121004
  Transmission Date: 20130627
  Serious: Yes (Death)
  Sender: FDA-Public Use
  Company Number: FR-009507513-1208FRA006617

PATIENT
  Age: 62 None
  Sex: Male
  Weight: 124 kg

DRUGS (13)
  1. SITAGLIPTIN [Suspect]
     Indication: TYPE 2 DIABETES MELLITUS
     Dosage: 2 DF, qd
     Route: 048
     Dates: start: 20100201, end: 20100929
  2. JANUVIA [Suspect]
     Indication: TYPE 2 DIABETES MELLITUS
     Dosage: 100 mg, qd
     Route: 048
     Dates: start: 20110923, end: 20111118
  3. METFORMIN [Concomitant]
     Indication: TYPE 2 DIABETES MELLITUS
     Dosage: 1000 mg, qd
     Route: 048
     Dates: start: 20100201, end: 20110923
  4. NOVO-NORM [Concomitant]
     Indication: TYPE 2 DIABETES MELLITUS
     Dosage: 12 mg, qd
     Route: 048
     Dates: start: 20100528, end: 20110923
  5. NOVO-NORM [Concomitant]
     Dosage: 6 mg, qd
     Route: 048
     Dates: start: 20111118
  6. EUCREAS [Concomitant]
     Indication: TYPE 2 DIABETES MELLITUS
     Dosage: 2 DF, qd
     Route: 048
     Dates: start: 20100929, end: 20110923
  7. EUCREAS [Concomitant]
     Indication: TYPE 2 DIABETES MELLITUS
     Dosage: 2 DF, qd
     Route: 048
     Dates: start: 20111118
  8. DIAMICRON [Concomitant]
     Dosage: 30 mg, qd
     Route: 048
     Dates: start: 20110923, end: 20111118
  9. STAGID [Concomitant]
     Indication: TYPE 2 DIABETES MELLITUS
     Dosage: 700 mg, qd
     Route: 048
     Dates: start: 20110923, end: 20111118
  10. LANTUS [Concomitant]
     Indication: TYPE 2 DIABETES MELLITUS
     Dosage: 32 IU, qd
     Route: 058
     Dates: start: 20110923, end: 20111118
  11. LANTUS [Concomitant]
     Indication: TYPE 2 DIABETES MELLITUS
  12. SOTALOL HYDROCHLORIDE [Concomitant]
     Indication: HYPERTENSION
     Dosage: 80 mg, qd
     Dates: start: 20050510
  13. PRAVASTATIN SODIUM [Suspect]
     Indication: DYSLIPIDAEMIA
     Dosage: 20 mg, qd
     Dates: start: 20050103

REACTIONS (2)
  - Lung neoplasm malignant [Fatal]
  - Hypoglycaemia [Unknown]
